FAERS Safety Report 10090628 (Version 1)
Quarter: 2014Q2

REPORT INFORMATION
  Report Type: Spontaneous
  Country: US (occurrence: US)
  Receive Date: 20140421
  Receipt Date: 20140421
  Transmission Date: 20141212
  Serious: No
  Sender: FDA-Public Use
  Company Number: US-PFIZER INC-2014109054

PATIENT
  Age: 57 Year
  Sex: Male
  Weight: 120 kg

DRUGS (3)
  1. ATORVASTATIN CALCIUM [Suspect]
     Indication: BLOOD CHOLESTEROL INCREASED
     Dosage: 10 MG, DAILY
     Dates: start: 2012, end: 201402
  2. TOPROL XL [Concomitant]
     Indication: HYPERTENSION
     Dosage: 50 MG, DAILY
  3. ZESTORETIC [Concomitant]
     Indication: HYPERTENSION
     Dosage: [LISINOPRIL 10MG]/[HYDROCHOROTHIAZIDE 25MG] DAILY

REACTIONS (1)
  - Pain [Unknown]
